FAERS Safety Report 9362895 (Version 1)
Quarter: 2013Q2

REPORT INFORMATION
  Report Type: Spontaneous
  Country: US (occurrence: None)
  Receive Date: 20130621
  Receipt Date: 20130621
  Transmission Date: 20140414
  Serious: No
  Sender: FDA-Public Use
  Company Number: None

PATIENT
  Age: 61 Year
  Sex: Female
  Weight: 94.35 kg

DRUGS (1)
  1. AMBIEN CR [Suspect]
     Route: 048

REACTIONS (2)
  - Sleep disorder [None]
  - Product substitution issue [None]
